FAERS Safety Report 10097333 (Version 1)
Quarter: 2014Q2

REPORT INFORMATION
  Report Type: Spontaneous
  Country: US (occurrence: US)
  Receive Date: 20140423
  Receipt Date: 20140423
  Transmission Date: 20141212
  Serious: Yes (Other)
  Sender: FDA-Public Use
  Company Number: US-GILEAD-2014-0099614

PATIENT
  Sex: Male

DRUGS (12)
  1. SOVALDI [Suspect]
     Indication: PRODUCT USED FOR UNKNOWN INDICATION
     Dosage: UNK
     Route: 065
     Dates: start: 201402
  2. RIBAVIRIN [Concomitant]
  3. PEGINTERFERON ALFA [Concomitant]
  4. LITHIUM [Concomitant]
  5. DOXEPIN [Concomitant]
  6. METFORMIN [Concomitant]
  7. AMLODIPINE [Concomitant]
  8. GLYBURIDE [Concomitant]
  9. LISINOPRIL [Concomitant]
  10. LABETALOL [Concomitant]
  11. SERTRALINE [Concomitant]
  12. LANTUS [Concomitant]

REACTIONS (3)
  - Muscle twitching [Unknown]
  - Confusional state [Unknown]
  - Irritability [Unknown]
